FAERS Safety Report 25168496 (Version 1)
Quarter: 2025Q2

REPORT INFORMATION
  Report Type: Report from Study
  Country: US (occurrence: US)
  Receive Date: 20250407
  Receipt Date: 20250407
  Transmission Date: 20250717
  Serious: No
  Sender: SANDOZ
  Company Number: US-SANDOZ-SDZ2025US021537

PATIENT
  Age: 0 Year
  Sex: Male

DRUGS (4)
  1. OMNITROPE [Suspect]
     Active Substance: SOMATROPIN
     Indication: Prader-Willi syndrome
     Dosage: 0.15 MG, QD ( 5 MG / 1.5 )
     Route: 058
     Dates: start: 20250320, end: 20250324
  2. OMNITROPE [Suspect]
     Active Substance: SOMATROPIN
     Indication: Prader-Willi syndrome
     Dosage: 0.15 MG, QD ( 5 MG / 1.5 )
     Route: 058
     Dates: start: 20250320, end: 20250324
  3. OMNITROPE [Suspect]
     Active Substance: SOMATROPIN
     Dosage: 0.15 MG, QD ( 5 MG / 1.5 )
     Route: 060
     Dates: start: 202503
  4. OMNITROPE [Suspect]
     Active Substance: SOMATROPIN
     Dosage: 0.15 MG, QD ( 5 MG / 1.5 )
     Route: 060
     Dates: start: 202503

REACTIONS (2)
  - Incorrect dose administered by device [Unknown]
  - Device leakage [Unknown]

NARRATIVE: CASE EVENT DATE: 20250320
